FAERS Safety Report 5118899-2 (Version None)
Quarter: 2006Q3

REPORT INFORMATION
  Report Type: 
  Country: None (occurrence: None)
  Receive Date: 20060922
  Receipt Date: 20060914
  Transmission Date: 20061208
  Serious: Yes (Hospitalization)
  Sender: FDA-Public Use
  Company Number: 2006-147270-NL

PATIENT
  Age: 67 Year
  Sex: Male

DRUGS (10)
  1. VECURONIUM BROMIDE [Suspect]
     Indication: HYPOTONIA
     Dosage: 22 MG
     Route: 042
     Dates: start: 20060802, end: 20060802
  2. NALOXONE HCL [Suspect]
     Indication: ANAESTHESIA REVERSAL
     Dosage: 22 MG
     Route: 042
     Dates: start: 20060802, end: 20060802
  3. PHENYLEPHRINE HYDROCHLORIDE [Suspect]
     Indication: ANAESTHESIA
     Dosage: 0.4 DF
     Route: 042
     Dates: start: 20060802, end: 20060802
  4. FENTANYL CITRATE [Concomitant]
  5. THIAMYLAL SODIUM [Concomitant]
  6. PROPOFOL [Concomitant]
  7. GLYCERYL TRINITRATE [Concomitant]
  8. DOPAMINE HCL [Concomitant]
  9. ATROPINE SULFATE [Concomitant]
  10. PHENYLEPHRINE HYDROCHLORIDE [Concomitant]

REACTIONS (3)
  - ACUTE PULMONARY OEDEMA [None]
  - DELAYED RECOVERY FROM ANAESTHESIA [None]
  - PROCEDURAL COMPLICATION [None]
